FAERS Safety Report 8217424-7 (Version None)
Quarter: 2012Q1

REPORT INFORMATION
  Report Type: 
  Country: None (occurrence: None)
  Receive Date: 20120315
  Receipt Date: 20120305
  Transmission Date: 20120608
  Serious: Yes (Other)
  Sender: FDA-Public Use
  Company Number: AUR-APL-2012-01299

PATIENT
  Age: 57 Year
  Sex: Female
  Weight: 75.74 kg

DRUGS (11)
  1. LISINOPRIL [Suspect]
     Indication: HYPERTENSION
     Dosage: (20 MG, 1 D), UNKNOWN
  2. LYRICA [Suspect]
     Indication: FIBROMYALGIA
     Dosage: 250 MG (125 MG, 2 IN 1 D), ORAL
     Route: 048
     Dates: start: 20060101, end: 20120101
  3. SULFASALAZINE [Concomitant]
  4. METOPROLOL TARTRATE [Concomitant]
  5. PRAVASTATIN SODIUM [Concomitant]
  6. TEMAZEPAM [Concomitant]
  7. CYMBALTA [Concomitant]
  8. MELOXICAM [Suspect]
     Indication: RHEUMATOID ARTHRITIS
     Dosage: 15 MG (7.5 MG, 2 IN 1 D), UNKNOWN
     Dates: end: 20111215
  9. LISINOPRIL AND HYDROCHLOROTHIAZIDE [Suspect]
     Indication: HYPERTENSION
     Dosage: 20/25MG (1 D)
  10. HYDROCODONE BITARTRATE [Concomitant]
  11. CLONIDINE HCL [Concomitant]

REACTIONS (2)
  - PAIN [None]
  - RENAL DISORDER [None]
